FAERS Safety Report 10413153 (Version 1)
Quarter: 2014Q3

REPORT INFORMATION
  Report Type: Report from Study
  Country: ZA (occurrence: ZA)
  Receive Date: 20140827
  Receipt Date: 20140827
  Transmission Date: 20150326
  Serious: Yes (Death, Hospitalization, Other)
  Sender: FDA-Public Use
  Company Number: ZA-BAYER-2014-089641

PATIENT
  Sex: Male

DRUGS (1)
  1. BETAFERON [Suspect]
     Active Substance: INTERFERON BETA-1B
     Indication: MULTIPLE SCLEROSIS
     Dosage: UNK

REACTIONS (19)
  - Emotional disorder [None]
  - Skin ulcer [None]
  - Depression [Recovering/Resolving]
  - Pain [None]
  - Sepsis [Fatal]
  - Malaise [None]
  - Hypoaesthesia [None]
  - Adverse drug reaction [None]
  - Thrombosis [Fatal]
  - Thrombophlebitis [None]
  - Fatigue [None]
  - Adverse drug reaction [None]
  - Hospitalisation [None]
  - Epilepsy [None]
  - Depression suicidal [None]
  - Loss of consciousness [None]
  - Fatigue [None]
  - Tremor [None]
  - Bladder disorder [None]

NARRATIVE: CASE EVENT DATE: 2008
